FAERS Safety Report 19264230 (Version 1)
Quarter: 2021Q2

REPORT INFORMATION
  Report Type: Spontaneous
  Country: US (occurrence: US)
  Receive Date: 20210517
  Receipt Date: 20210517
  Transmission Date: 20210717
  Serious: No
  Sender: FDA-Public Use
  Company Number: US-CELGENEUS-USA-20210501462

PATIENT

DRUGS (1)
  1. AZACITIDINE. [Suspect]
     Active Substance: AZACITIDINE
     Indication: NON-SMALL CELL LUNG CANCER
     Dosage: DAILY ON DAYS 1?5 AND 15?19 OF 28?DAY CYCLES, AT 3 ESCALATING DOSES (15, 30 AND 45 MG/M2 DAILY)
     Route: 055
     Dates: start: 201503, end: 201802

REACTIONS (1)
  - Lung diffusion test decreased [Recovered/Resolved]
